FAERS Safety Report 6290933-6 (Version None)
Quarter: 2009Q3

REPORT INFORMATION
  Report Type: 
  Country: None (occurrence: None)
  Receive Date: 20090730
  Receipt Date: 20090709
  Transmission Date: 20100115
  Serious: Yes (Hospitalization)
  Sender: FDA-Public Use
  Company Number: FR-PFIZER INC-2009246026

PATIENT
  Age: 43 Year

DRUGS (6)
  1. HYDROXYZINE HCL [Suspect]
     Dosage: UNK
     Route: 048
     Dates: start: 20090606, end: 20090606
  2. HYDROXYZINE HCL [Suspect]
     Dosage: UNK
     Route: 048
     Dates: start: 20090610, end: 20090610
  3. SERESTA [Suspect]
     Dosage: 50 MG, UNK
     Route: 048
     Dates: start: 20090606, end: 20090606
  4. SERESTA [Suspect]
     Dosage: UNK
     Route: 048
     Dates: start: 20090610, end: 20090612
  5. EFFEXOR [Suspect]
     Dosage: UNK
     Route: 048
     Dates: start: 20090606, end: 20090606
  6. EFFEXOR [Suspect]
     Dosage: UNK
     Route: 048
     Dates: start: 20090610, end: 20090610

REACTIONS (2)
  - HEARING IMPAIRED [None]
  - SUICIDE ATTEMPT [None]
